FAERS Safety Report 5015696-3 (Version None)
Quarter: 2006Q2

REPORT INFORMATION
  Report Type: 
  Country: None (occurrence: None)
  Receive Date: 20060526
  Receipt Date: 20060517
  Transmission Date: 20061013
  Serious: Yes (Other)
  Sender: FDA-Public Use
  Company Number: GXKR2006CH02846

PATIENT
  Age: 84 Year
  Sex: Male
  Weight: 69 kg

DRUGS (11)
  1. LISINOPRIL [Suspect]
     Dosage: 20 MG/DAY, ORAL
     Route: 048
     Dates: start: 20060223, end: 20060224
  2. ATORVASTATIN CALCIUM [Suspect]
     Indication: ARTERIOSCLEROSIS CORONARY ARTERY
     Dosage: 40 MG/DAY, ORAL
     Route: 048
     Dates: start: 20050101, end: 20060220
  3. MIRTAZAPINE [Suspect]
     Dosage: 15MG/DAY, INTRAVENOUS
     Route: 042
     Dates: start: 20060220, end: 20060224
  4. AMARYL [Suspect]
     Dosage: 2 MG/DAY, ORAL
     Route: 048
     Dates: end: 20060222
  5. ASPIRIN [Concomitant]
  6. ALDACTONE [Concomitant]
  7. CARVEDILOL [Concomitant]
  8. TOREM (TORASEMIDE) [Concomitant]
  9. CORVATONE (MOLSIDOMINE) [Concomitant]
  10. DISTRANEURIN (CLOMETHIAZOLE EDISILATE) [Concomitant]
  11. LOPIRIN (CAPOPRIL) [Concomitant]

REACTIONS (4)
  - ACUTE CORONARY SYNDROME [None]
  - ALANINE AMINOTRANSFERASE INCREASED [None]
  - ASPARTATE AMINOTRANSFERASE INCREASED [None]
  - RHABDOMYOLYSIS [None]
